FAERS Safety Report 11690128 (Version 1)
Quarter: 2015Q4

REPORT INFORMATION
  Report Type: Spontaneous
  Country: US (occurrence: None)
  Receive Date: 20151030
  Receipt Date: 20151030
  Transmission Date: 20160304
  Serious: No
  Sender: FDA-Public Use
  Company Number: None

PATIENT
  Age: 18 Year
  Sex: Female
  Weight: 69.85 kg

DRUGS (3)
  1. TONY ROBBINS LIVING LIGHT [Concomitant]
  2. BIRTH CONTROL PILL [Suspect]
     Active Substance: UNSPECIFIED INGREDIENT
  3. LEVOTHYROXINE. [Suspect]
     Active Substance: LEVOTHYROXINE
     Indication: HYPOTHYROIDISM
     Dosage: 1   ONCE DAILY TAKEN BY MOUTH
     Route: 048
     Dates: start: 20151025, end: 20151029

REACTIONS (4)
  - Decreased interest [None]
  - Illogical thinking [None]
  - Irritability [None]
  - Abnormal behaviour [None]

NARRATIVE: CASE EVENT DATE: 20151027
